FAERS Safety Report 14356692 (Version 3)
Quarter: 2018Q4

REPORT INFORMATION
  Report Type: Report from Study
  Country: TW (occurrence: TW)
  Receive Date: 20180105
  Receipt Date: 20181001
  Transmission Date: 20190204
  Serious: Yes (Other)
  Sender: FDA-Public Use
  Company Number: PHHY2017TW198230

PATIENT
  Age: 76 Year
  Sex: Female

DRUGS (7)
  1. SEROQUEL [Concomitant]
     Active Substance: QUETIAPINE FUMARATE
     Indication: DEMENTIA
     Dosage: 25 MG, UNK
     Route: 048
     Dates: start: 20160614
  2. BETADERM [Concomitant]
     Active Substance: BETAMETHASONE VALERATE
     Indication: DERMATITIS
     Dosage: 10 MG/TUB, UNK
     Route: 048
     Dates: start: 20170621
  3. CB [Concomitant]
     Indication: DERMATITIS
     Dosage: 5 G/TUB, UNK
     Route: 048
     Dates: start: 20170621
  4. XYZAL [Concomitant]
     Active Substance: LEVOCETIRIZINE DIHYDROCHLORIDE
     Indication: DERMATITIS
     Dosage: 5 MG/TUB, UNK
     Route: 048
     Dates: start: 20170621, end: 20170704
  5. PILIAN [Concomitant]
     Indication: DERMATITIS
     Dosage: 4 MG/TUB, UNK
     Route: 048
     Dates: start: 20170621, end: 20170704
  6. HYDERGIN [Concomitant]
     Active Substance: ERGOLOID MESYLATES
     Indication: DEMENTIA ALZHEIMER^S TYPE
     Dosage: 1.5 MG, UNK
     Route: 048
     Dates: start: 20160614, end: 20161207
  7. EXELON PATCH [Suspect]
     Active Substance: RIVASTIGMINE
     Indication: DEMENTIA ALZHEIMER^S TYPE
     Dosage: 9.5 MG, QD PATCH 10 (CM2)
     Route: 062
     Dates: start: 20161207

REACTIONS (1)
  - Arrhythmia [Unknown]

NARRATIVE: CASE EVENT DATE: 20170329
